FAERS Safety Report 20617318 (Version 2)
Quarter: 2022Q2

REPORT INFORMATION
  Report Type: Spontaneous
  Country: CZ (occurrence: CZ)
  Receive Date: 20220321
  Receipt Date: 20220623
  Transmission Date: 20220721
  Serious: Yes (Hospitalization)
  Sender: FDA-Public Use
  Company Number: CZ-GLENMARK PHARMACEUTICALS-2022GMK070056

PATIENT
  Age: 24 Year
  Sex: Female
  Weight: 70 kg

DRUGS (8)
  1. OLANZAPINE [Suspect]
     Active Substance: OLANZAPINE
     Indication: Schizophrenia
     Dosage: 20 MILLIGRAM, QD (1ST-5TH DAY OF 3RD HOSPITALIZATION)
     Route: 065
  2. OLANZAPINE [Suspect]
     Active Substance: OLANZAPINE
     Dosage: 10 MILLIGRAM, QD (FROM 8TH-DAY OF 3RD HOSPITALIZATION)
     Route: 065
  3. OLANZAPINE [Suspect]
     Active Substance: OLANZAPINE
     Dosage: 10 MILLIGRAM, QD
     Route: 065
  4. OLANZAPINE [Suspect]
     Active Substance: OLANZAPINE
     Dosage: 15 MILLIGRAM, QD (6TH-7TH DAY OF 3RD HOSPITALIZATION)
     Route: 065
  5. OLANZAPINE [Suspect]
     Active Substance: OLANZAPINE
     Dosage: 10 MILLIGRAM, QD (AFTER DISCHARGE)
     Route: 065
  6. OLANZAPINE [Suspect]
     Active Substance: OLANZAPINE
     Dosage: 10 MILLIGRAM, QD
     Route: 065
     Dates: start: 202011
  7. OLANZAPINE [Suspect]
     Active Substance: OLANZAPINE
     Dosage: 20 MILLIGRAM, QD
     Route: 065
  8. OLANZAPINE [Suspect]
     Active Substance: OLANZAPINE
     Dosage: 15 MILLIGRAM (ON DAYS 6-7 )
     Route: 065

REACTIONS (5)
  - Refusal of treatment by patient [Unknown]
  - Weight increased [Recovering/Resolving]
  - Sedation [Unknown]
  - Hyperglycaemia [Recovered/Resolved]
  - Treatment noncompliance [Unknown]
